FAERS Safety Report 16177635 (Version 3)
Quarter: 2020Q1

REPORT INFORMATION
  Report Type: Spontaneous
  Country: DE (occurrence: DE)
  Receive Date: 20190410
  Receipt Date: 20200108
  Transmission Date: 20200409
  Serious: Yes (Other)
  Sender: FDA-Public Use
  Company Number: DE-AUROBINDO-AUR-APL-2019-015628

PATIENT
  Age: 80 Year
  Sex: Male

DRUGS (3)
  1. FINASTERIDE AUROBINDO 5MG FILM-COATED TABLETS [Suspect]
     Active Substance: FINASTERIDE
     Indication: PROSTATE EXAMINATION
     Dosage: 5 MILLIGRAM, ONCE A DAY
     Route: 048
  2. CANDESARTAN RATIOPHARM [Concomitant]
     Indication: PRODUCT USED FOR UNKNOWN INDICATION
     Dosage: UNK
     Route: 048
  3. PROSTAGUTT FORTE [Concomitant]
     Active Substance: HERBALS
     Indication: PRODUCT USED FOR UNKNOWN INDICATION
     Dosage: UNK
     Route: 048

REACTIONS (2)
  - Dementia [Recovered/Resolved]
  - Depression [Recovered/Resolved]
